FAERS Safety Report 9010133 (Version 2)
Quarter: 2013Q2

REPORT INFORMATION
  Report Type: Spontaneous
  Country: US (occurrence: US)
  Receive Date: 20130111
  Receipt Date: 20130530
  Transmission Date: 20140414
  Serious: Yes (Hospitalization)
  Sender: FDA-Public Use
  Company Number: US-GILEAD-2013-0067678

PATIENT
  Age: 52 Year
  Sex: Female

DRUGS (4)
  1. LETAIRIS [Suspect]
     Indication: PULMONARY HYPERTENSION
     Dosage: 10 MG, UNK
     Route: 048
     Dates: start: 20120511
  2. LETAIRIS [Suspect]
     Indication: DRUG THERAPY
  3. LASIX                              /00032601/ [Concomitant]
  4. DILTIAZEM [Concomitant]

REACTIONS (1)
  - Syncope [Recovered/Resolved]
